FAERS Safety Report 9349926 (Version 1)
Quarter: 2013Q2

REPORT INFORMATION
  Report Type: Report from Study
  Country: MX (occurrence: MX)
  Receive Date: 20130614
  Receipt Date: 20130614
  Transmission Date: 20140414
  Serious: Yes (Other)
  Sender: FDA-Public Use
  Company Number: PHHY2011MX83586

PATIENT
  Age: 71 Year
  Sex: Male

DRUGS (1)
  1. CO-DIOVAN [Suspect]
     Indication: HYPERTENSION
     Dosage: 1 DF, (160/25MG) DAILY
     Route: 048
     Dates: end: 201005

REACTIONS (3)
  - Renal impairment [Recovered/Resolved]
  - Pneumonia [Recovered/Resolved]
  - Tachycardia [Recovered/Resolved]
